FAERS Safety Report 7669521-2 (Version None)
Quarter: 2011Q3

REPORT INFORMATION
  Report Type: 
  Country: None (occurrence: None)
  Receive Date: 20110808
  Receipt Date: 20110803
  Transmission Date: 20111222
  Serious: Yes (Other)
  Sender: FDA-Public Use
  Company Number: US-MERCK-1108USA00532

PATIENT
  Age: 50 Year
  Sex: Male

DRUGS (3)
  1. PLAVIX [Concomitant]
     Route: 065
  2. ZOCOR [Suspect]
     Route: 048
  3. CRESTOR [Concomitant]
     Route: 065
     Dates: start: 20110419

REACTIONS (2)
  - HEPATIC ENZYME INCREASED [None]
  - ADVERSE EVENT [None]
